FAERS Safety Report 5102704-4 (Version None)
Quarter: 2006Q3

REPORT INFORMATION
  Report Type: 
  Country: None (occurrence: None)
  Receive Date: 20060907
  Receipt Date: 20060824
  Transmission Date: 20061208
  Serious: Yes (Other)
  Sender: FDA-Public Use
  Company Number: DEU-2006-0002027

PATIENT
  Age: 80 Year
  Sex: Female
  Weight: 80 kg

DRUGS (3)
  1. PALLADON RETARD 4 MG (HYDROMORPHINE HYDROCHLORIDE) PROLONGED-RELEASE C [Suspect]
     Indication: ARTHRALGIA
     Dosage: 4 MG, Q12H, ORAL
     Route: 048
     Dates: start: 20051201, end: 20060301
  2. PALLADON 1,3MG HARTKAPSELN (HYDROMORPHONE HYDROCHLORIDE) CAPSULE, HARD [Suspect]
     Indication: ARTHRALGIA
     Dosage: 1.3 MG, QID, ORAL
     Route: 048
  3. COUMADIN [Suspect]
     Indication: DRUG USE FOR UNKNOWN INDICATION
     Dosage: SEE TEXT, ORAL
     Route: 048

REACTIONS (4)
  - DRUG INEFFECTIVE [None]
  - DRUG INTERACTION [None]
  - DRUG RESISTANCE [None]
  - PROTHROMBIN TIME SHORTENED [None]
